FAERS Safety Report 6338893-3 (Version None)
Quarter: 2009Q3

REPORT INFORMATION
  Report Type: 
  Country: None (occurrence: None)
  Receive Date: 20090903
  Receipt Date: 20090826
  Transmission Date: 20100115
  Serious: Yes (Hospitalization, Other)
  Sender: FDA-Public Use
  Company Number: PHHY2009FR36635

PATIENT
  Sex: Male

DRUGS (7)
  1. NEORAL [Suspect]
     Indication: COLITIS ULCERATIVE
     Dosage: UNK
     Route: 048
     Dates: start: 20090227
  2. NEORAL [Suspect]
     Dosage: UNK
     Route: 048
     Dates: end: 20090724
  3. IMUREL [Suspect]
     Dosage: 70 MG, QD
     Route: 048
     Dates: start: 20090530, end: 20090724
  4. CORTANCYL [Concomitant]
     Dosage: UNK
     Dates: start: 20090227
  5. INEXIUM [Concomitant]
     Dosage: 20 MG, QD
     Dates: start: 20090227
  6. DEDROGYL [Concomitant]
     Dosage: UNK
     Dates: start: 20090227
  7. POTASSIUM CHLORIDE [Concomitant]
     Dosage: UNK
     Dates: start: 20090227

REACTIONS (8)
  - ABDOMINAL PAIN [None]
  - CHOLESTATIC PRURITUS [None]
  - GAMMA-GLUTAMYLTRANSFERASE INCREASED [None]
  - HYPERTRICHOSIS [None]
  - IMMUNOSUPPRESSANT DRUG LEVEL INCREASED [None]
  - LIVER FUNCTION TEST ABNORMAL [None]
  - OVERDOSE [None]
  - TRANSAMINASES INCREASED [None]
